FAERS Safety Report 19704839 (Version 1)
Quarter: 2021Q3

REPORT INFORMATION
  Report Type: Spontaneous
  Country: TW (occurrence: TW)
  Receive Date: 20210816
  Receipt Date: 20210816
  Transmission Date: 20211014
  Serious: Yes (Hospitalization)
  Sender: FDA-Public Use
  Company Number: TW-AZURITY PHARMACEUTICALS, INC.-2021AZY00079

PATIENT
  Age: 31 Year
  Sex: Female

DRUGS (1)
  1. METHOTREXATE. [Suspect]
     Active Substance: METHOTREXATE
     Indication: ACUTE MYELOID LEUKAEMIA
     Dosage: 12 MG X 10 SESSIONS, TOTAL ACCUMULATIVE DOSE OF 120 MG
     Route: 037

REACTIONS (1)
  - Myelopathy [Recovered/Resolved]
